FAERS Safety Report 18642730 (Version 1)
Quarter: 2020Q4

REPORT INFORMATION
  Report Type: Spontaneous
  Country: MX (occurrence: MX)
  Receive Date: 20201221
  Receipt Date: 20201221
  Transmission Date: 20210114
  Serious: Yes (Death, Other)
  Sender: FDA-Public Use
  Company Number: MX-009507513-2012MEX008284

PATIENT
  Age: 93 Year
  Sex: Male
  Weight: 65 kg

DRUGS (1)
  1. VYTORIN [Suspect]
     Active Substance: EZETIMIBE\SIMVASTATIN
     Indication: CARDIAC DISORDER
     Dosage: UNK
     Route: 048

REACTIONS (9)
  - Myocardial infarction [Fatal]
  - Depression [Unknown]
  - Accident [Unknown]
  - Diabetes mellitus [Unknown]
  - Eye injury [Unknown]
  - Heart valve incompetence [Unknown]
  - Eye disorder [Unknown]
  - Decreased interest [Unknown]
  - Product use in unapproved indication [Unknown]
